FAERS Safety Report 9994773 (Version 1)
Quarter: 2014Q1

REPORT INFORMATION
  Report Type: Spontaneous
  Country: AT (occurrence: None)
  Receive Date: 20140306
  Receipt Date: 20140306
  Transmission Date: 20141002
  Serious: Yes (Other)
  Sender: FDA-Public Use
  Company Number: 2014DEPAT00048

PATIENT
  Age: 16 Year
  Sex: Male
  Weight: 53 kg

DRUGS (3)
  1. DEPOCYT [Suspect]
     Indication: NONGERMINOMATOUS GERM CELL TUMOUR OF THE CNS
     Route: 037
  2. DEXAMETHASONE [Concomitant]
  3. PROTON PUMP INHIBITORS [Concomitant]

REACTIONS (2)
  - Visual acuity reduced [None]
  - Optic nerve injury [None]
